FAERS Safety Report 4892217-7 (Version None)
Quarter: 2006Q1

REPORT INFORMATION
  Report Type: 
  Country: None (occurrence: None)
  Receive Date: 20060124
  Receipt Date: 20060111
  Transmission Date: 20060701
  Serious: Yes (Other)
  Sender: FDA-Public Use
  Company Number: 2006AL000051

PATIENT
  Age: 39 Year
  Sex: Female

DRUGS (4)
  1. CLONAZEPAM [Suspect]
  2. BOTULINUM TOXIN A [Suspect]
     Indication: TORTICOLLIS
     Dosage: 500 IU
  3. BENZATROPINE [Concomitant]
  4. FLUOXETINE [Concomitant]

REACTIONS (4)
  - ABORTION SPONTANEOUS [None]
  - DRUG EXPOSURE DURING PREGNANCY [None]
  - FOETAL HEART RATE ABNORMAL [None]
  - TWIN PREGNANCY [None]
